FAERS Safety Report 5429409-4 (Version None)
Quarter: 2007Q3

REPORT INFORMATION
  Report Type: 
  Country: None (occurrence: None)
  Receive Date: 20070829
  Receipt Date: 20070820
  Transmission Date: 20080115
  Serious: Yes (Other)
  Sender: FDA-Public Use
  Company Number: US-ROCHE-512447

PATIENT
  Age: 75 Year
  Sex: Female

DRUGS (7)
  1. BONIVA [Suspect]
     Indication: BONE DISORDER
     Dosage: FORM REPORTED AS 'PILL'
     Route: 065
     Dates: start: 20060801, end: 20061001
  2. BONIVA [Suspect]
     Route: 065
     Dates: start: 20070417
  3. LYRICA [Concomitant]
  4. LAMICTAL [Concomitant]
  5. CALCIUM NOS [Concomitant]
  6. VIACTIV [Concomitant]
  7. VITAMIN [Concomitant]

REACTIONS (3)
  - BONE DISORDER [None]
  - PAIN IN JAW [None]
  - TOOTHACHE [None]
